FAERS Safety Report 6564715-1 (Version None)
Quarter: 2010Q1

REPORT INFORMATION
  Report Type: 
  Country: None (occurrence: None)
  Receive Date: 20100201
  Receipt Date: 20091211
  Transmission Date: 20100710
  Serious: No
  Sender: FDA-Public Use
  Company Number: A0835288A

PATIENT
  Sex: Male

DRUGS (1)
  1. TREXIMET [Suspect]
     Indication: HEADACHE
     Route: 048
     Dates: start: 20091101

REACTIONS (2)
  - HYPOAESTHESIA [None]
  - PARAESTHESIA [None]
